FAERS Safety Report 9975483 (Version 1)
Quarter: 2014Q1

REPORT INFORMATION
  Report Type: Spontaneous
  Country: US (occurrence: US)
  Receive Date: 20140306
  Receipt Date: 20140306
  Transmission Date: 20141002
  Serious: No
  Sender: FDA-Public Use
  Company Number: US-ABBVIE-13P-163-1155684-00

PATIENT
  Age: 57 Year
  Sex: Female
  Weight: 93.07 kg

DRUGS (7)
  1. HUMIRA [Suspect]
     Indication: CROHN^S DISEASE
     Route: 058
     Dates: start: 2013
  2. METHOTREXATE [Concomitant]
     Indication: CROHN^S DISEASE
  3. GLIPIZIDE [Concomitant]
     Indication: DIABETES MELLITUS
  4. TIZADINE [Concomitant]
     Indication: CROHN^S DISEASE
  5. SIMVASTATIN [Concomitant]
     Indication: BLOOD CHOLESTEROL INCREASED
  6. NORTRIPTYLINE [Concomitant]
     Indication: INSOMNIA
  7. BUSPIRONE [Concomitant]
     Indication: ANXIETY

REACTIONS (1)
  - Wrong technique in drug usage process [Recovered/Resolved]
